FAERS Safety Report 8973030 (Version 1)
Quarter: 2012Q4

REPORT INFORMATION
  Report Type: 
  Country: US (occurrence: US)
  Receive Date: 20121218
  Receipt Date: 20121218
  Transmission Date: 20130627
  Serious: No
  Sender: FDA-Public Use
  Company Number: US-BAYER-2012-125377

PATIENT
  Age: 61 Year
  Sex: Male
  Weight: 79 kg

DRUGS (2)
  1. BETASERON [Suspect]
     Indication: MS
     Dosage: 0.3 mg, QOD
     Route: 058
  2. AMPYRA [Concomitant]

REACTIONS (1)
  - Balance disorder [None]
